FAERS Safety Report 8271270-7 (Version None)
Quarter: 2012Q2

REPORT INFORMATION
  Report Type: 
  Country: None (occurrence: None)
  Receive Date: 20120410
  Receipt Date: 20120402
  Transmission Date: 20120825
  Serious: Yes (Other)
  Sender: FDA-Public Use
  Company Number: US-FRI-1000029563

PATIENT
  Sex: Female

DRUGS (2)
  1. CIPROFLOXACIN HCL [Suspect]
  2. THYROID TAB [Suspect]
     Dosage: 90 MG
     Route: 048

REACTIONS (2)
  - ATRIAL FIBRILLATION [None]
  - DRUG DISPENSING ERROR [None]
